FAERS Safety Report 23392865 (Version 2)
Quarter: 2024Q1

REPORT INFORMATION
  Report Type: Spontaneous
  Country: US (occurrence: US)
  Receive Date: 20240111
  Receipt Date: 20240112
  Transmission Date: 20240410
  Serious: Yes (Other)
  Sender: FDA-Public Use
  Company Number: US-REGENERON PHARMACEUTICALS, INC.-2023-124974

PATIENT
  Sex: Female

DRUGS (3)
  1. EYLEA [Suspect]
     Active Substance: AFLIBERCEPT
     Indication: Macular degeneration
     Dosage: UNK, Q4W (EVERY 4 WEEKS) IN LEFT EYE (PATIENT ON TREATMENT FOR BOTH EYES); FORMULATION: UNKNOWN
     Dates: start: 202304, end: 2023
  2. EYLEA [Suspect]
     Active Substance: AFLIBERCEPT
     Dosage: UNK, SWITCHED TO Q6W (EVERY 6 WEEKS) IN LEFT EYE; FORMULATION AND STRENGTH: UNKNOWN
     Dates: start: 2023
  3. EYLEA [Suspect]
     Active Substance: AFLIBERCEPT
     Dosage: UNK, Q4W (EVERY 4 WEEKS) IN RIGHT EYE; FORMULATION AND STRENGTH: UNKNOWN
     Dates: start: 2023

REACTIONS (2)
  - Cataract [Unknown]
  - Visual impairment [Unknown]

NARRATIVE: CASE EVENT DATE: 20230101
